FAERS Safety Report 13653920 (Version 1)
Quarter: 2017Q2

REPORT INFORMATION
  Report Type: Spontaneous
  Country: JP (occurrence: JP)
  Receive Date: 20170614
  Receipt Date: 20170614
  Transmission Date: 20170830
  Serious: Yes (Other)
  Sender: FDA-Public Use
  Company Number: JP-MYLANLABS-2017M1034917

PATIENT

DRUGS (4)
  1. CELECOX [Suspect]
     Active Substance: CELECOXIB
     Indication: PAIN
     Route: 065
  2. DOCETAXEL MYLAN [Suspect]
     Active Substance: DOCETAXEL
     Indication: PRODUCT USED FOR UNKNOWN INDICATION
     Dosage: UNK
     Route: 065
     Dates: start: 20130910
  3. ZOLEDRONIC ACID MYLAN [Suspect]
     Active Substance: ZOLEDRONIC ACID
     Indication: METASTASES TO BONE
     Dosage: UNK
     Route: 065
     Dates: start: 20141201
  4. LETROZOLE. [Suspect]
     Active Substance: LETROZOLE
     Indication: PRODUCT USED FOR UNKNOWN INDICATION
     Dosage: UNK
     Route: 065
     Dates: start: 20140109

REACTIONS (9)
  - Tumour marker increased [Unknown]
  - Pain [Unknown]
  - Ankle fracture [Unknown]
  - Metastases to bone [Unknown]
  - Spinal column stenosis [Unknown]
  - Fall [Unknown]
  - Abdominal pain upper [Unknown]
  - Monoplegia [Unknown]
  - Hypophagia [Unknown]
